FAERS Safety Report 9661083 (Version 1)
Quarter: 2013Q4

REPORT INFORMATION
  Report Type: Spontaneous
  Country: FR (occurrence: FR)
  Receive Date: 20131031
  Receipt Date: 20131031
  Transmission Date: 20140711
  Serious: Yes (Other)
  Sender: FDA-Public Use
  Company Number: FR-SA-2013SA105810

PATIENT
  Age: 27 Year
  Sex: Male

DRUGS (6)
  1. ALEMTUZUMAB [Suspect]
     Indication: IMMUNOSUPPRESSION
     Route: 065
  2. PREDNISONE [Suspect]
     Indication: IMMUNOSUPPRESSION
     Route: 065
     Dates: start: 2009
  3. ANTI-THYMOCYTE GLOBULIN (RABBIT) [Suspect]
     Indication: IMMUNOSUPPRESSION
     Route: 042
     Dates: start: 2009
  4. MYCOPHENOLATE MOFETIL [Suspect]
     Indication: IMMUNOSUPPRESSION
     Route: 065
     Dates: start: 2009
  5. TACROLIMUS [Suspect]
     Indication: IMMUNOSUPPRESSION
     Dosage: TARGET TROUGH LEVELS: 10-15 MCG/L
     Route: 048
     Dates: start: 2009
  6. METHYLPREDNISOLONE [Concomitant]
     Dosage: PULSE

REACTIONS (6)
  - B-cell lymphoma [Recovering/Resolving]
  - Pneumocystis jirovecii pneumonia [Unknown]
  - Oral candidiasis [Unknown]
  - Herpes simplex [Unknown]
  - Herpes zoster [Unknown]
  - Off label use [Unknown]
